FAERS Safety Report 20065154 (Version 1)
Quarter: 2021Q4

REPORT INFORMATION
  Report Type: Spontaneous
  Country: US (occurrence: US)
  Receive Date: 20211113
  Receipt Date: 20211113
  Transmission Date: 20220303
  Serious: Yes (Hospitalization, Other)
  Sender: FDA-Public Use
  Company Number: US-Shilpa Medicare Limited-SML-US-2021-01315

PATIENT
  Age: 21 Year
  Sex: Female

DRUGS (6)
  1. IMATINIB [Suspect]
     Active Substance: IMATINIB
     Indication: Chronic myeloid leukaemia
     Dosage: DURING EARLY FIRST TRIMESTER, PATIENT DISCONTINUED IMATINIB THERAPY,
     Route: 065
  2. IMATINIB [Suspect]
     Active Substance: IMATINIB
     Dosage: AT 27 WEEKS AND 6 DAYS OF GESTATION
     Route: 065
  3. DIAMORPHINE [Concomitant]
     Active Substance: DIAMORPHINE
     Indication: Cancer pain
     Dosage: LAST USE OF DIAMORPHINE,14 MONTHS PRIOR TO PREGNANCY.
     Route: 042
  4. ONDANSETRON [Concomitant]
     Active Substance: ONDANSETRON
     Indication: Nausea
     Route: 065
  5. BETAMETHASONE [Concomitant]
     Active Substance: BETAMETHASONE
     Indication: Product used for unknown indication
     Route: 065
  6. ACETAMINOPHEN [Concomitant]
     Active Substance: ACETAMINOPHEN
     Indication: Cancer pain
     Route: 065

REACTIONS (4)
  - Drug screen false positive [Recovered/Resolved]
  - Premature delivery [Recovered/Resolved]
  - Preterm premature rupture of membranes [Recovered/Resolved]
  - Maternal exposure during pregnancy [Recovered/Resolved]
